FAERS Safety Report 5154937-9 (Version None)
Quarter: 2006Q4

REPORT INFORMATION
  Report Type: 
  Country: None (occurrence: None)
  Receive Date: 20061121
  Receipt Date: 20061115
  Transmission Date: 20070319
  Serious: Yes (Death)
  Sender: FDA-Public Use
  Company Number: PHEH2006US14303

PATIENT
  Age: 72 Year
  Sex: Male

DRUGS (1)
  1. LOPRESSOR [Suspect]
     Dosage: 50 MG, ONCE/SINGLE
     Route: 048
     Dates: start: 20060501, end: 20060501

REACTIONS (5)
  - BLOOD PRESSURE DECREASED [None]
  - INCORRECT DOSE ADMINISTERED [None]
  - MEDICATION ERROR [None]
  - PULSE ABSENT [None]
  - RESPIRATORY ARREST [None]
